FAERS Safety Report 4778754-4 (Version None)
Quarter: 2005Q3

REPORT INFORMATION
  Report Type: 
  Country: None (occurrence: None)
  Receive Date: 20050922
  Receipt Date: 20050909
  Transmission Date: 20060218
  Serious: Yes (Hospitalization)
  Sender: FDA-Public Use
  Company Number: 2005126795

PATIENT
  Age: 73 Year
  Sex: Female
  Weight: 110 kg

DRUGS (3)
  1. TOLTERODINE TARTRATE [Suspect]
     Indication: ILL-DEFINED DISORDER
     Dosage: 1 IN1 D 2 YEARS AGO
  2. ALL OTHER THERAPEUTIC PRODUCTS (ALL OTHER THERAPEUTIC PRODUCTS) [Concomitant]
  3. THYROXINE (LEVOTHYROXINE) [Concomitant]

REACTIONS (6)
  - CHOLELITHIASIS [None]
  - FALL [None]
  - HYPERHIDROSIS [None]
  - INFECTION [None]
  - PAIN [None]
  - PANCREATITIS [None]
